FAERS Safety Report 5628145-9 (Version None)
Quarter: 2008Q1

REPORT INFORMATION
  Report Type: 
  Country: None (occurrence: None)
  Receive Date: 20080215
  Receipt Date: 20080205
  Transmission Date: 20080703
  Serious: Yes (Hospitalization, Other)
  Sender: FDA-Public Use
  Company Number: US-ELI_LILLY_AND_COMPANY-US200802000943

PATIENT
  Sex: Male

DRUGS (2)
  1. CIALIS [Suspect]
     Dosage: 20 MG, UNK
     Dates: start: 20070201
  2. CADUET [Concomitant]

REACTIONS (3)
  - CORONARY ARTERY BYPASS [None]
  - HEADACHE [None]
  - MUSCULAR WEAKNESS [None]
